FAERS Safety Report 5121547-9 (Version None)
Quarter: 2006Q4

REPORT INFORMATION
  Report Type: 
  Country: None (occurrence: None)
  Receive Date: 20061003
  Receipt Date: 20060920
  Transmission Date: 20070319
  Serious: Yes (Life-Threatening, Hospitalization)
  Sender: FDA-Public Use
  Company Number: 2006103058

PATIENT
  Age: 41 Year
  Sex: Male
  Weight: 86 kg

DRUGS (1)
  1. VIAGRA [Suspect]
     Indication: ERECTILE DYSFUNCTION
     Dosage: 100 MG (50 MG), ORAL
     Route: 048
     Dates: start: 20060801

REACTIONS (8)
  - BLOOD CREATINE PHOSPHOKINASE MB INCREASED [None]
  - CARDIAC PACEMAKER INSERTION [None]
  - HYPERHIDROSIS [None]
  - MALAISE [None]
  - PALLOR [None]
  - PALPITATIONS [None]
  - SYNCOPE [None]
  - VENTRICULAR TACHYCARDIA [None]
